FAERS Safety Report 17132969 (Version 1)
Quarter: 2019Q4

REPORT INFORMATION
  Report Type: Spontaneous
  Country: US (occurrence: US)
  Receive Date: 20191116
  Receipt Date: 20191116
  Transmission Date: 20200122
  Serious: Yes (Other)
  Sender: FDA-Public Use
  Company Number: None

PATIENT
  Age: 59 Year
  Sex: Male
  Weight: 107 kg

DRUGS (2)
  1. MORPHINE UNKNOWN [Suspect]
     Active Substance: MORPHINE
     Indication: BACK PAIN
  2. BELBUCA [Suspect]
     Active Substance: BUPRENORPHINE HYDROCHLORIDE
     Indication: BACK PAIN
     Route: 048
     Dates: start: 20190429

REACTIONS (2)
  - Drug ineffective [None]
  - Urticaria [None]
